FAERS Safety Report 6365067-2 (Version None)
Quarter: 2009Q3

REPORT INFORMATION
  Report Type: 
  Country: None (occurrence: None)
  Receive Date: 20090919
  Receipt Date: 20090729
  Transmission Date: 20100115
  Serious: No
  Sender: FDA-Public Use
  Company Number: US-ABBOTT-09P-163-0589194-00

PATIENT
  Sex: Female
  Weight: 113.5 kg

DRUGS (12)
  1. HUMIRA [Suspect]
     Indication: RHEUMATOID ARTHRITIS
     Route: 058
  2. HUMIRA [Suspect]
     Route: 058
  3. HUMIRA [Suspect]
     Indication: RHEUMATOID ARTHRITIS
     Route: 058
  4. HUMIRA [Suspect]
     Route: 058
  5. INHALER [Concomitant]
     Indication: ASTHMA
     Route: 055
  6. CELEBREX [Concomitant]
     Indication: RHEUMATOID ARTHRITIS
  7. PLAQUENIL [Concomitant]
     Indication: RHEUMATOID ARTHRITIS
  8. MS CONTIN [Concomitant]
     Indication: PAIN
  9. FOLIC ACID [Concomitant]
     Indication: DRUG USE FOR UNKNOWN INDICATION
  10. METHOTREXATE [Concomitant]
     Indication: DRUG LEVEL
     Dosage: TWICE WEEKLY TAKES 6 TABS, PILLS 2.5MG EACH
     Route: 048
  11. BENZAPRIL [Concomitant]
     Indication: HYPERTENSION
  12. HYDROCODONE [Concomitant]
     Indication: DRUG USE FOR UNKNOWN INDICATION

REACTIONS (4)
  - DRUG INEFFECTIVE [None]
  - INFLUENZA [None]
  - OPEN WOUND [None]
  - WOUND INFECTION STAPHYLOCOCCAL [None]
